FAERS Safety Report 5031250-1 (Version None)
Quarter: 2006Q2

REPORT INFORMATION
  Report Type: 
  Country: None (occurrence: None)
  Receive Date: 20060504
  Receipt Date: 20050916
  Transmission Date: 20061013
  Serious: Yes (Other)
  Sender: FDA-Public Use
  Company Number: SGB1-2005-00455

PATIENT
  Sex: Male

DRUGS (3)
  1. ANAGRELIDE HCL [Suspect]
     Indication: POLYCYTHAEMIA VERA
  2. BETA BLOCKING AGENTS [Concomitant]
  3. ANTI-ARRYTHMIC DRUGS [Concomitant]

REACTIONS (2)
  - ARRHYTHMIA [None]
  - PALPITATIONS [None]
